FAERS Safety Report 24917939 (Version 1)
Quarter: 2025Q1

REPORT INFORMATION
  Report Type: Spontaneous
  Country: US (occurrence: None)
  Receive Date: 20250203
  Receipt Date: 20250203
  Transmission Date: 20250408
  Serious: Yes (Hospitalization)
  Sender: FDA-CTU
  Company Number: None

PATIENT
  Age: 62 Year
  Sex: Female
  Weight: 50.35 kg

DRUGS (2)
  1. KEYTRUDA [Suspect]
     Active Substance: PEMBROLIZUMAB
     Indication: Uterine cancer
     Route: 041
     Dates: start: 20241112, end: 20241231
  2. LENVIMA [Suspect]
     Active Substance: LENVATINIB

REACTIONS (10)
  - Myasthenia gravis [None]
  - Pleuritic pain [None]
  - Asthenia [None]
  - Fatigue [None]
  - Dysphagia [None]
  - Therapy cessation [None]
  - Acute myocardial infarction [None]
  - Speech disorder [None]
  - Dysstasia [None]
  - Loss of personal independence in daily activities [None]

NARRATIVE: CASE EVENT DATE: 20250108
